FAERS Safety Report 8826806 (Version 2)
Quarter: 2013Q1

REPORT INFORMATION
  Report Type: Report from Study
  Country: NO (occurrence: NO)
  Receive Date: 20121005
  Receipt Date: 20130320
  Transmission Date: 20140127
  Serious: Yes (Hospitalization)
  Sender: FDA-Public Use
  Company Number: NO-PFIZER INC-2012241192

PATIENT
  Age: 49 Year
  Sex: Female
  Weight: 91 kg

DRUGS (13)
  1. FLUOROURACIL [Suspect]
     Indication: BREAST CANCER
     Dosage: 100 (UNIT UNKNOWN), EVERY 3 WEEKS
     Route: 042
     Dates: start: 20120202, end: 20120430
  2. FLUOROURACIL [Suspect]
     Dosage: 100 UNK, EVERY 3 WEEKS
     Route: 042
     Dates: start: 20120507
  3. EPIRUBICIN HCL [Suspect]
     Indication: BREAST CANCER
     Dosage: 100 (UNIT UNKNOWN) EVERY 3 WEEKS
     Route: 042
     Dates: start: 20120202, end: 20120430
  4. EPIRUBICIN HCL [Suspect]
     Dosage: 100 (UNIT UNKNOWN) EVERY 3 WEEKS
     Route: 042
     Dates: start: 20120507
  5. BEVACIZUMAB [Suspect]
     Indication: BREAST CANCER
     Dosage: 1350 MG, EVERY 3 WEEKS
     Route: 042
     Dates: start: 20120202, end: 20120430
  6. BEVACIZUMAB [Suspect]
     Dosage: 1350 MG, EVERY 3 WEEKS
     Route: 042
     Dates: start: 20120507
  7. CYCLOPHOSPHAMIDE [Suspect]
     Indication: BREAST CANCER
     Dosage: 100 (UNIT UNKNOWN) EVERY 3 WEEKS
     Route: 042
     Dates: start: 20120202, end: 20120430
  8. CYCLOPHOSPHAMIDE [Suspect]
     Dosage: 100 (UNIT UNKNOWN) EVERY 3 WEEKS
     Route: 042
     Dates: start: 20120507
  9. DOCETAXEL [Suspect]
     Indication: BREAST CANCER
     Dosage: UNK
     Route: 042
     Dates: start: 20120507
  10. ATORVASTATIN CALCIUM [Concomitant]
  11. EBASTINE [Concomitant]
  12. BUDESONIDE/FORMOTEROL FUMARATE [Concomitant]
  13. FLUTICASONE FUROATE [Concomitant]

REACTIONS (4)
  - Non-cardiac chest pain [Recovered/Resolved]
  - Upper respiratory tract infection [Recovered/Resolved]
  - Febrile neutropenia [Recovered/Resolved]
  - Febrile neutropenia [Recovered/Resolved]
